FAERS Safety Report 25404979 (Version 1)
Quarter: 2025Q2

REPORT INFORMATION
  Report Type: Spontaneous
  Country: US (occurrence: US)
  Receive Date: 20250606
  Receipt Date: 20250606
  Transmission Date: 20250717
  Serious: Yes (Hospitalization, Other)
  Sender: RANBAXY
  Company Number: US-SUN PHARMACEUTICAL INDUSTRIES LTD-2025R1-510016

PATIENT
  Age: 50 Year
  Sex: Male

DRUGS (1)
  1. CLINDAMYCIN [Suspect]
     Active Substance: CLINDAMYCIN
     Indication: Cellulitis
     Route: 065

REACTIONS (4)
  - Clostridium difficile infection [Unknown]
  - Pneumatosis intestinalis [Unknown]
  - Intestinal ischaemia [Unknown]
  - Megacolon [Unknown]
